FAERS Safety Report 8597122-0 (Version None)
Quarter: 2012Q3

REPORT INFORMATION
  Report Type: 
  Country: None (occurrence: None)
  Receive Date: 20120816
  Receipt Date: 20120807
  Transmission Date: 20120928
  Serious: No
  Sender: FDA-Public Use
  Company Number: US-BIOGENIDEC-2012BI029961

PATIENT
  Sex: Male

DRUGS (3)
  1. INTERFERON BETA-1A [Concomitant]
     Route: 030
     Dates: start: 20100901
  2. INTERFERON BETA-1A [Concomitant]
     Indication: MULTIPLE SCLEROSIS
     Route: 030
     Dates: start: 20040305
  3. TYSABRI [Suspect]
     Indication: MULTIPLE SCLEROSIS
     Route: 042
     Dates: start: 20090919, end: 20111001

REACTIONS (10)
  - COGNITIVE DISORDER [None]
  - CONFUSIONAL STATE [None]
  - MUSCULOSKELETAL DISORDER [None]
  - VISUAL ACUITY REDUCED [None]
  - FALL [None]
  - NEUROPATHY PERIPHERAL [None]
  - TREMOR [None]
  - IRRITABILITY [None]
  - MULTIPLE SCLEROSIS [None]
  - APHASIA [None]
